FAERS Safety Report 23361284 (Version 1)
Quarter: 2024Q1

REPORT INFORMATION
  Report Type: Spontaneous
  Country: US (occurrence: US)
  Receive Date: 20240103
  Receipt Date: 20240103
  Transmission Date: 20240410
  Serious: No
  Sender: FDA-Public Use
  Company Number: US-Eisai Medical Research-EC-2023-141843

PATIENT
  Age: 79 Year
  Sex: Male

DRUGS (6)
  1. LEQEMBI [Suspect]
     Active Substance: LECANEMAB-IRMB
     Indication: Dementia Alzheimer^s type
     Dosage: DOSE UNKNOWN
     Route: 042
     Dates: start: 2023
  2. DONEPEZIL [Concomitant]
     Active Substance: DONEPEZIL
  3. DONEPEZIL [Concomitant]
     Active Substance: DONEPEZIL
     Route: 048
  4. MEMANTINE [Concomitant]
     Active Substance: MEMANTINE
  5. SIMVASTATIN [Concomitant]
     Active Substance: SIMVASTATIN
  6. VITAMIN B [Concomitant]
     Active Substance: VITAMIN B

REACTIONS (3)
  - Pallor [Recovered/Resolved]
  - Influenza like illness [Recovered/Resolved]
  - Sluggishness [Not Recovered/Not Resolved]

NARRATIVE: CASE EVENT DATE: 20230101
